FAERS Safety Report 9349859 (Version 2)
Quarter: 2013Q3

REPORT INFORMATION
  Report Type: Spontaneous
  Country: US (occurrence: None)
  Receive Date: 20130611
  Receipt Date: 20130702
  Transmission Date: 20140515
  Serious: Yes (Hospitalization, Other)
  Sender: FDA-Public Use
  Company Number: 2012-001806

PATIENT
  Age: 54 Year
  Sex: Female
  Weight: 69.4 kg

DRUGS (5)
  1. ACTONEL [Suspect]
     Indication: OSTEOPOROSIS
     Route: 048
  2. ACTONEL [Suspect]
     Route: 048
  3. FOSAMAX (ALENDRONATE SODIUM) [Suspect]
     Indication: OSTEOPOROSIS
     Route: 048
     Dates: start: 20021023, end: 200702
  4. FOSAMAX D [Suspect]
     Indication: OSTEOPOROSIS
     Route: 048
     Dates: start: 200702, end: 200812
  5. ALENDRONATE SODIUM (ALENDRONATE SODIUM) (ALENDRONATE SODIUM) [Suspect]
     Indication: OSTEOPOROSIS
     Route: 048
     Dates: start: 200812, end: 201003

REACTIONS (7)
  - Fall [None]
  - Femur fracture [None]
  - Pain in extremity [None]
  - Fracture delayed union [None]
  - Low turnover osteopathy [None]
  - Skeletal injury [None]
  - Toxicity to various agents [None]
